FAERS Safety Report 10866227 (Version 1)
Quarter: 2015Q1

REPORT INFORMATION
  Report Type: Spontaneous
  Country: US (occurrence: None)
  Receive Date: 20150219
  Receipt Date: 20150219
  Transmission Date: 20150721
  Serious: Yes (Other)
  Sender: FDA-Public Use
  Company Number: None

PATIENT
  Age: 85 Year
  Sex: Female
  Weight: 58.97 kg

DRUGS (2)
  1. GABAPENTIN 100MG GENERIC [Suspect]
     Active Substance: GABAPENTIN
     Indication: NERVE COMPRESSION
     Route: 048
     Dates: start: 20141119, end: 20150204
  2. GABAPENTIN 100MG GENERIC [Suspect]
     Active Substance: GABAPENTIN
     Indication: PAIN IN EXTREMITY
     Route: 048
     Dates: start: 20141119, end: 20150204

REACTIONS (3)
  - Activities of daily living impaired [None]
  - Coordination abnormal [None]
  - Fall [None]

NARRATIVE: CASE EVENT DATE: 20150101
